FAERS Safety Report 10708477 (Version 1)
Quarter: 2015Q1

REPORT INFORMATION
  Report Type: Report from Study
  Country: US (occurrence: US)
  Receive Date: 20150113
  Receipt Date: 20150113
  Transmission Date: 20150721
  Serious: Yes (Death)
  Sender: FDA-Public Use
  Company Number: US-ASTELLAS-2015US001071

PATIENT
  Age: 75 Year

DRUGS (3)
  1. ERLOTINIB [Suspect]
     Active Substance: ERLOTINIB
     Route: 065
     Dates: start: 20121021, end: 20121214
  2. ERLOTINIB [Suspect]
     Active Substance: ERLOTINIB
     Indication: LUNG NEOPLASM MALIGNANT
     Dosage: UNK, UNKNOWN FREQ.
     Route: 065
     Dates: start: 20120607, end: 20120924
  3. DOVITINIB LACTATE [Suspect]
     Active Substance: DOVITINIB LACTATE
     Indication: LUNG NEOPLASM MALIGNANT
     Route: 065
     Dates: start: 20121021, end: 20121214

REACTIONS (1)
  - Death [Fatal]
